FAERS Safety Report 13813102 (Version 3)
Quarter: 2017Q3

REPORT INFORMATION
  Report Type: Spontaneous
  Country: US (occurrence: US)
  Receive Date: 20170731
  Receipt Date: 20170823
  Transmission Date: 20171127
  Serious: No
  Sender: FDA-Public Use
  Company Number: US-AMGEN-USASP2017113577

PATIENT
  Age: 63 Year
  Sex: Female

DRUGS (2)
  1. ENBREL [Suspect]
     Active Substance: ETANERCEPT
     Indication: PRODUCT USED FOR UNKNOWN INDICATION
     Dosage: UNK
     Route: 065
     Dates: start: 201701, end: 2017
  2. HUMIRA [Concomitant]
     Active Substance: ADALIMUMAB
     Dosage: UNK
     Dates: start: 201703, end: 201705

REACTIONS (1)
  - Malaise [Recovered/Resolved]

NARRATIVE: CASE EVENT DATE: 2017
